FAERS Safety Report 8465135-5 (Version None)
Quarter: 2012Q2

REPORT INFORMATION
  Report Type: 
  Country: None (occurrence: None)
  Receive Date: 20120619
  Receipt Date: 20120605
  Transmission Date: 20120825
  Serious: Yes (Disabling)
  Sender: FDA-Public Use
  Company Number: 2012MA007258

PATIENT
  Age: 58 Year
  Sex: Male

DRUGS (10)
  1. ATORVASTATIN [Concomitant]
  2. SERTRALINE HYDROCHLORIDE [Suspect]
     Indication: PRODUCT USED FOR UNKNOWN INDICATION
     Dosage: ;PO
     Route: 048
     Dates: end: 20110222
  3. CLOZARIL [Suspect]
     Indication: SCHIZOPHRENIA
     Dosage: 225 MG;HS;PC
     Route: 048
     Dates: start: 20120105
  4. VALPROIC ACID [Concomitant]
  5. LOVAZA [Concomitant]
  6. MOVIPREP [Concomitant]
  7. BISOPROLOL FUMARATE [Concomitant]
  8. LEVOTHYROXINE SODIUM [Concomitant]
  9. ARIPIPRAZOLE [Concomitant]
  10. AMISULPRIDE [Concomitant]

REACTIONS (7)
  - URINARY RETENTION [None]
  - HYDRONEPHROSIS [None]
  - URINARY INCONTINENCE [None]
  - ORCHITIS [None]
  - NEPHRITIS [None]
  - EPIDIDYMITIS [None]
  - DRUG INTERACTION [None]
